FAERS Safety Report 6083910-1 (Version None)
Quarter: 2009Q1

REPORT INFORMATION
  Report Type: 
  Country: None (occurrence: None)
  Receive Date: 20090204
  Receipt Date: 20071001
  Transmission Date: 20090719
  Serious: No
  Sender: FDA-Public Use
  Company Number: 268085

PATIENT
  Age: 66 Year
  Sex: Female

DRUGS (4)
  1. NOVOLOG [Suspect]
     Indication: INSULIN-REQUIRING TYPE 2 DIABETES MELLITUS
     Dosage: SUBCUTANEOUS
     Route: 058
  2. LANTUS (INSULIN ANALOGUE) [Concomitant]
  3. MICARDIS [Concomitant]
  4. PROTONOL (PANTOPRAZOLE SODIUM) [Concomitant]

REACTIONS (1)
  - TINNITUS [None]
